FAERS Safety Report 18741536 (Version 1)
Quarter: 2021Q1

REPORT INFORMATION
  Report Type: Spontaneous
  Country: US (occurrence: US)
  Receive Date: 20210114
  Receipt Date: 20210114
  Transmission Date: 20210419
  Serious: No
  Sender: FDA-Public Use
  Company Number: US-ABBVIE-20K-163-3631733-00

PATIENT
  Age: 68 Year
  Sex: Male
  Weight: 56.75 kg

DRUGS (6)
  1. ZOLOFT [Concomitant]
     Active Substance: SERTRALINE HYDROCHLORIDE
     Indication: ANXIETY
  2. DUOPA [Suspect]
     Active Substance: CARBIDOPA\LEVODOPA
     Indication: PARKINSON^S DISEASE
     Route: 050
     Dates: start: 201901
  3. SINEMET [Concomitant]
     Active Substance: CARBIDOPA\LEVODOPA
     Indication: PARKINSON^S DISEASE
  4. DUOPA [Suspect]
     Active Substance: CARBIDOPA\LEVODOPA
  5. RASAGILINE. [Concomitant]
     Active Substance: RASAGILINE
     Indication: PARKINSON^S DISEASE
  6. ATIVAN [Concomitant]
     Active Substance: LORAZEPAM
     Indication: ANXIETY

REACTIONS (10)
  - Medical device discomfort [Not Recovered/Not Resolved]
  - Stoma site pain [Unknown]
  - Nightmare [Unknown]
  - Constipation [Not Recovered/Not Resolved]
  - Unevaluable event [Unknown]
  - Pain [Unknown]
  - Medical device pain [Not Recovered/Not Resolved]
  - Hallucination [Unknown]
  - Device dislocation [Unknown]
  - Stoma site erythema [Unknown]

NARRATIVE: CASE EVENT DATE: 202010
